FAERS Safety Report 4329976-8 (Version None)
Quarter: 2004Q2

REPORT INFORMATION
  Report Type: 
  Country: None (occurrence: None)
  Receive Date: 20040401
  Receipt Date: 19990927
  Transmission Date: 20050107
  Serious: Yes (Hospitalization, Disabling)
  Sender: FDA-Public Use
  Company Number: US-MERCK-99091937

PATIENT
  Age: 48 Year
  Sex: Male
  Weight: 89 kg

DRUGS (14)
  1. [THERAPY UNSPECIFIED] [Concomitant]
     Route: 065
  2. CORTISONE [Concomitant]
     Route: 065
     Dates: start: 20000201
  3. FAMOTIDINE [Concomitant]
     Route: 065
     Dates: start: 19990921
  4. INFLUENZA VIRUS VACCINE [Concomitant]
     Route: 065
     Dates: start: 19990930, end: 19990930
  5. METHOTREXATE [Concomitant]
     Route: 065
     Dates: start: 20000201
  6. METOCLOPRAMIDE [Concomitant]
     Route: 065
     Dates: start: 19990921
  7. OMEPRAZOLE [Concomitant]
     Route: 065
     Dates: start: 19990930
  8. PREDNISONE [Concomitant]
     Route: 065
     Dates: start: 20000201
  9. VIOXX [Suspect]
     Indication: TENDONITIS
     Route: 048
     Dates: start: 19990913, end: 19991001
  10. VIOXX [Suspect]
     Route: 048
     Dates: start: 20000201, end: 20011101
  11. VIOXX [Suspect]
     Route: 048
     Dates: start: 20020701
  12. VIOXX [Suspect]
     Indication: PSORIATIC ARTHROPATHY
     Route: 048
     Dates: start: 19990913, end: 19991001
  13. VIOXX [Suspect]
     Route: 048
     Dates: start: 20000201, end: 20011101
  14. VIOXX [Suspect]
     Route: 048
     Dates: start: 20020701

REACTIONS (28)
  - ALANINE AMINOTRANSFERASE INCREASED [None]
  - ASPARTATE AMINOTRANSFERASE INCREASED [None]
  - BLOOD THYROID STIMULATING HORMONE INCREASED [None]
  - CHEST PAIN [None]
  - CORONARY ARTERY ATHEROSCLEROSIS [None]
  - CORONARY ARTERY DISEASE [None]
  - CORONARY ARTERY OCCLUSION [None]
  - DERMATITIS CONTACT [None]
  - DISEASE PROGRESSION [None]
  - DYSPEPSIA [None]
  - GASTRODUODENITIS [None]
  - GASTROINTESTINAL DISORDER [None]
  - GOUT [None]
  - HEPATIC ENZYME INCREASED [None]
  - HEPATIC STEATOSIS [None]
  - HEPATITIS [None]
  - HEPATOCELLULAR DAMAGE [None]
  - HYPERLIPIDAEMIA [None]
  - HYPERTENSION [None]
  - HYPOTHYROIDISM [None]
  - LIVER DISORDER [None]
  - MYOCARDIAL INFARCTION [None]
  - OESOPHAGITIS [None]
  - PALINDROMIC RHEUMATISM [None]
  - POLYARTHRITIS [None]
  - PSORIATIC ARTHROPATHY [None]
  - RASH ERYTHEMATOUS [None]
  - SQUAMOUS CELL CARCINOMA [None]
